FAERS Safety Report 18258883 (Version 1)
Quarter: 2020Q3

REPORT INFORMATION
  Report Type: Spontaneous
  Country: DE (occurrence: DE)
  Receive Date: 20200911
  Receipt Date: 20200911
  Transmission Date: 20201103
  Serious: Yes (Hospitalization, Other)
  Sender: FDA-Public Use
  Company Number: DE-GLAXOSMITHKLINE-DE2020178720

PATIENT
  Age: 63 Year
  Sex: Female

DRUGS (1)
  1. NUCALA [Suspect]
     Active Substance: MEPOLIZUMAB
     Indication: ASTHMA
     Dosage: UNK, MONTHLY
     Route: 058
     Dates: start: 2019

REACTIONS (5)
  - Renal impairment [Unknown]
  - Renal failure [Unknown]
  - Pyrexia [Unknown]
  - Urinary tract infection [Unknown]
  - Urinary retention [Unknown]

NARRATIVE: CASE EVENT DATE: 20200727
